FAERS Safety Report 11903454 (Version 1)
Quarter: 2016Q1

REPORT INFORMATION
  Report Type: Report from Study
  Country: US (occurrence: US)
  Receive Date: 20160110
  Receipt Date: 20160110
  Transmission Date: 20160526
  Serious: No
  Sender: FDA-Public Use
  Company Number: GXBR2015US002698

PATIENT
  Sex: Female
  Weight: 40.82 kg

DRUGS (1)
  1. OMNITROPE [Suspect]
     Active Substance: SOMATROPIN
     Indication: BODY HEIGHT BELOW NORMAL
     Dosage: 2 MG, SIX DAYS A WEEK
     Route: 065
     Dates: start: 201408

REACTIONS (2)
  - Condition aggravated [Not Recovered/Not Resolved]
  - Scoliosis [Not Recovered/Not Resolved]
